FAERS Safety Report 8814937 (Version 2)
Quarter: 2012Q4

REPORT INFORMATION
  Report Type: 
  Country: FR (occurrence: FR)
  Receive Date: 20120928
  Receipt Date: 20121114
  Transmission Date: 20130627
  Serious: Yes (Other)
  Sender: FDA-Public Use
  Company Number: FR-BRISTOL-MYERS SQUIBB COMPANY-16978165

PATIENT
  Age: 73 Year
  Sex: Male

DRUGS (6)
  1. COAPROVEL TABS [Suspect]
  2. EUCREAS [Interacting]
     Dosage: 1DF:50mg/1000mg
     Route: 048
  3. IXPRIM [Suspect]
     Dosage: Intrpd on:16Aug2012
     Route: 048
     Dates: start: 20120702
  4. SULFARLEM [Concomitant]
     Dosage: Sulfarlem S25
  5. KARDEGIC [Concomitant]
  6. DIAMICRON [Concomitant]
     Dosage: Diamicron LP

REACTIONS (6)
  - Eyelid oedema [Recovering/Resolving]
  - Aphasia [Recovering/Resolving]
  - Dyspnoea [Recovering/Resolving]
  - Drug interaction [Unknown]
  - Decreased appetite [Recovering/Resolving]
  - Weight decreased [Recovering/Resolving]
